FAERS Safety Report 10380369 (Version 2)
Quarter: 2014Q3

REPORT INFORMATION
  Report Type: Spontaneous
  Country: GR (occurrence: GR)
  Receive Date: 20140813
  Receipt Date: 20140916
  Transmission Date: 20150326
  Serious: Yes (Other)
  Sender: FDA-Public Use
  Company Number: GR-AMGEN-GRCSP2014061419

PATIENT
  Age: 66 Year
  Sex: Female
  Weight: 60 kg

DRUGS (3)
  1. METHOTREXATE SODIUM. [Concomitant]
     Active Substance: METHOTREXATE SODIUM
     Indication: RHEUMATOID ARTHRITIS
     Dosage: 10 MG, WEEKLY
     Route: 048
  2. CORTISONE [Concomitant]
     Active Substance: CORTISONE\HYDROCORTISONE
     Indication: RHEUMATOID ARTHRITIS
     Dosage: 5 MG, DAILY
     Route: 048
  3. ENBREL [Suspect]
     Active Substance: ETANERCEPT
     Indication: RHEUMATOID ARTHRITIS
     Dosage: 50 MG, WEEKLY
     Route: 058
     Dates: start: 20140501, end: 20140610

REACTIONS (10)
  - Dry mouth [Recovering/Resolving]
  - Colitis [Recovered/Resolved]
  - Injection site erythema [Recovered/Resolved]
  - Pain in extremity [Recovering/Resolving]
  - Injection site hypersensitivity [Recovered/Resolved]
  - Vulvovaginal pain [Recovering/Resolving]
  - Injection site oedema [Recovered/Resolved]
  - Abdominal pain [Recovering/Resolving]
  - Fatigue [Recovering/Resolving]
  - Nipple pain [Recovering/Resolving]

NARRATIVE: CASE EVENT DATE: 20140501
